FAERS Safety Report 25570715 (Version 1)
Quarter: 2025Q3

REPORT INFORMATION
  Report Type: Report from Study
  Country: US (occurrence: US)
  Receive Date: 20250717
  Receipt Date: 20250717
  Transmission Date: 20251020
  Serious: Yes (Hospitalization)
  Sender: ABBVIE
  Company Number: US-ABBVIE-6330706

PATIENT
  Age: 57 Year
  Sex: Female

DRUGS (1)
  1. CREON [Suspect]
     Active Substance: PANCRELIPASE AMYLASE\PANCRELIPASE LIPASE\PANCRELIPASE PROTEASE
     Indication: Product used for unknown indication
     Route: 048
     Dates: start: 20140101

REACTIONS (17)
  - Blood potassium decreased [Not Recovered/Not Resolved]
  - Hypophagia [Not Recovered/Not Resolved]
  - Asthenia [Recovering/Resolving]
  - Lipase abnormal [Not Recovered/Not Resolved]
  - Blood iron abnormal [Not Recovered/Not Resolved]
  - Hypertension [Not Recovered/Not Resolved]
  - Glycosylated haemoglobin abnormal [Not Recovered/Not Resolved]
  - Gait disturbance [Recovering/Resolving]
  - Vitamin D decreased [Recovering/Resolving]
  - Dysstasia [Unknown]
  - Oesophageal ulcer [Unknown]
  - Vitamin B12 decreased [Recovering/Resolving]
  - Anaemia [Not Recovered/Not Resolved]
  - Decreased appetite [Unknown]
  - Abdominal pain upper [Not Recovered/Not Resolved]
  - Haematemesis [Not Recovered/Not Resolved]
  - Malnutrition [Not Recovered/Not Resolved]

NARRATIVE: CASE EVENT DATE: 20230101
